FAERS Safety Report 7354685-0 (Version None)
Quarter: 2011Q1

REPORT INFORMATION
  Report Type: 
  Country: None (occurrence: None)
  Receive Date: 20110316
  Receipt Date: 20110314
  Transmission Date: 20110831
  Serious: No
  Sender: FDA-Public Use
  Company Number: US-PFIZER INC-2011056154

PATIENT
  Sex: Female

DRUGS (2)
  1. CHANTIX [Suspect]
     Indication: SMOKING CESSATION THERAPY
     Dosage: 1 MG, 2X/DAY
     Route: 048
     Dates: start: 20110311, end: 20110313
  2. VICODIN [Concomitant]
     Indication: BACK DISORDER
     Dosage: 1000 MG, AS NEEDED
     Route: 048
     Dates: start: 20050101

REACTIONS (1)
  - RASH [None]
